FAERS Safety Report 8367228-X (Version None)
Quarter: 2012Q2

REPORT INFORMATION
  Report Type: 
  Country: None (occurrence: None)
  Receive Date: 20120517
  Receipt Date: 20120508
  Transmission Date: 20120825
  Serious: Yes (Hospitalization, Other)
  Sender: FDA-Public Use
  Company Number: JP-VERTEX PHARMACEUTICALS INC.-AE-2012-006836

PATIENT
  Age: 64 Year
  Sex: Female

DRUGS (9)
  1. CANDESARTAN CILEXETIL [Concomitant]
     Route: 048
  2. REBETOL [Concomitant]
     Route: 048
     Dates: start: 20120412
  3. REBETOL [Concomitant]
     Indication: HEPATITIS C
     Route: 048
     Dates: start: 20120321, end: 20120411
  4. FAMOTIDINE [Concomitant]
     Route: 048
  5. SELBEX [Concomitant]
     Route: 048
  6. PEGINTERFERON ALFA-2B [Concomitant]
     Indication: HEPATITIS C
     Route: 051
     Dates: start: 20120321
  7. TELAVIC (TELAPREVIR) [Suspect]
     Indication: HEPATITIS C
     Route: 048
     Dates: start: 20120321
  8. URSO 250 [Concomitant]
     Route: 048
  9. LEVOTHYROXINE SODIUM [Concomitant]
     Route: 048

REACTIONS (3)
  - ANAEMIA [None]
  - DECREASED APPETITE [None]
  - RENAL IMPAIRMENT [None]
